FAERS Safety Report 7320802-1 (Version None)
Quarter: 2011Q1

REPORT INFORMATION
  Report Type: 
  Country: None (occurrence: None)
  Receive Date: 20110216
  Receipt Date: 20110127
  Transmission Date: 20110831
  Serious: No
  Sender: FDA-Public Use
  Company Number: 2011-00035

PATIENT
  Sex: Female
  Weight: 63.5036 kg

DRUGS (1)
  1. ZICAM COLD REMEDY NASAL GEL [Suspect]
     Dosage: AS NEEDED
     Dates: start: 20010101, end: 20060101

REACTIONS (1)
  - HYPOSMIA [None]
